FAERS Safety Report 10495055 (Version 2)
Quarter: 2014Q4

REPORT INFORMATION
  Report Type: Spontaneous
  Country: GB (occurrence: GB)
  Receive Date: 20141003
  Receipt Date: 20141003
  Transmission Date: 20150528
  Serious: Yes (Death, Other)
  Sender: FDA-Public Use
  Company Number: GB-ACTAVIS-2014-18369

PATIENT
  Age: 43 Year
  Sex: Female

DRUGS (2)
  1. ONDANSETRON HYDROCHLORIDE (UNKNOWN) [Suspect]
     Active Substance: ONDANSETRON HYDROCHLORIDE
     Indication: PRODUCT USED FOR UNKNOWN INDICATION
     Dosage: UNK (PROBABLY 4 MG)
     Route: 042
  2. OXYCODONE (UNKNOWN) [Suspect]
     Active Substance: OXYCODONE
     Indication: PRODUCT USED FOR UNKNOWN INDICATION
     Dosage: UNK
     Route: 065

REACTIONS (5)
  - Toxicity to various agents [None]
  - Atrioventricular block [Recovered/Resolved]
  - Atrioventricular block second degree [None]
  - Procedural complication [None]
  - Death [Fatal]
